FAERS Safety Report 4323654-7 (Version None)
Quarter: 2004Q1

REPORT INFORMATION
  Report Type: 
  Country: None (occurrence: None)
  Receive Date: 20040323
  Receipt Date: 20040309
  Transmission Date: 20041129
  Serious: Yes (Hospitalization)
  Sender: FDA-Public Use
  Company Number: FR-JNJFOC-20040204308

PATIENT
  Sex: Female

DRUGS (1)
  1. HALDOL [Suspect]
     Dosage: 1 ML, INTRAMUSCULAR
     Route: 030

REACTIONS (2)
  - PHARMACEUTICAL PRODUCT COMPLAINT [None]
  - TENDON INJURY [None]
